FAERS Safety Report 8841995 (Version 1)
Quarter: 2012Q4

REPORT INFORMATION
  Report Type: 
  Country: US (occurrence: US)
  Receive Date: 20121016
  Receipt Date: 20121016
  Transmission Date: 20130627
  Serious: Yes (Other)
  Sender: FDA-Public Use
  Company Number: US-RANBAXY-2012US-60911

PATIENT
  Age: 56 Year
  Sex: Male

DRUGS (1)
  1. CLINDAMYCIN [Suspect]
     Indication: CELLULITIS
     Dosage: 300 mg, qid
     Route: 048

REACTIONS (3)
  - Ageusia [Recovering/Resolving]
  - Dry mouth [Recovered/Resolved]
  - Burning mouth syndrome [Unknown]
